FAERS Safety Report 9718198 (Version 1)
Quarter: 2013Q4

REPORT INFORMATION
  Report Type: Spontaneous
  Country: US (occurrence: US)
  Receive Date: 20131125
  Receipt Date: 20131125
  Transmission Date: 20140711
  Serious: No
  Sender: FDA-Public Use
  Company Number: US-VIVUS-2013V1000088

PATIENT
  Sex: Female
  Weight: 88.53 kg

DRUGS (5)
  1. QSYMIA 3.75MG/23MG [Suspect]
     Indication: WEIGHT DECREASED
     Route: 048
     Dates: start: 20130207, end: 20130207
  2. QSYMIA 3.75MG/23MG [Suspect]
     Route: 048
     Dates: start: 201301
  3. QSYMIA 7.5MG/46MG [Suspect]
     Indication: WEIGHT DECREASED
     Route: 048
     Dates: end: 20130206
  4. SERTRALINE [Concomitant]
     Indication: ANXIETY
     Dates: start: 2011
  5. ACTIVELLA [Concomitant]
     Indication: HORMONE REPLACEMENT THERAPY

REACTIONS (8)
  - Hunger [Not Recovered/Not Resolved]
  - Decreased appetite [Recovered/Resolved]
  - Hot flush [Not Recovered/Not Resolved]
  - Dysgeusia [Not Recovered/Not Resolved]
  - Dyspepsia [Not Recovered/Not Resolved]
  - Insomnia [Recovered/Resolved]
  - Irritability [Not Recovered/Not Resolved]
  - Inappropriate schedule of drug administration [Recovered/Resolved]
